FAERS Safety Report 21759184 (Version 1)
Quarter: 2022Q4

REPORT INFORMATION
  Report Type: Spontaneous
  Country: FR (occurrence: FR)
  Receive Date: 20221221
  Receipt Date: 20221221
  Transmission Date: 20230113
  Serious: Yes (Life-Threatening)
  Sender: FDA-Public Use
  Company Number: None

PATIENT
  Age: 66 Year
  Sex: Male
  Weight: 82 kg

DRUGS (8)
  1. AMOXICILLIN [Suspect]
     Active Substance: AMOXICILLIN
     Indication: Infection prophylaxis
     Dosage: DOSE ADMINISTERED UNKNOWN , FREQUENCY TIME : 1 TOTAL , DURATION : 1 DAY
     Dates: start: 20220916, end: 20220916
  2. CLAVULANIC ACID [Suspect]
     Active Substance: CLAVULANIC ACID
     Indication: Infection prophylaxis
     Dosage: DOSE ADMINISTERED UNKNOWN   , ACIDE CLAVULANIQUE , FREQUENCY TIME : 1 TOTAL , DURATION : 1 DAY
     Dates: start: 20220916, end: 20220916
  3. KARDEGIC [Concomitant]
     Active Substance: ASPIRIN DL-LYSINE
     Indication: Product used for unknown indication
  4. KETAMINE HYDROCHLORIDE [Concomitant]
     Active Substance: KETAMINE HYDROCHLORIDE
     Indication: Anaesthesia
     Dosage: DOSE ADMINISTERED UNKNOWN  , CHLORHYDRATE DE KETAMINE , FREQUENCY TIME : 1 TOTAL , DURATION : 1 DAY
     Dates: start: 20220916, end: 20220916
  5. DEXAMETHASONE ACETATE [Concomitant]
     Active Substance: DEXAMETHASONE ACETATE
     Indication: Anaesthesia
     Dosage: DOSE ADMINISTERED UNKNOWN  , ACETATE DE DEXAMETHASONE , FREQUENCY TIME : 1 TOTAL , DURATION : 1 DAY
     Dates: start: 20220916, end: 20220916
  6. MIDAZOLAM [Concomitant]
     Active Substance: MIDAZOLAM
     Indication: Anaesthesia
     Dosage: DOSE ADMINISTERED UNKNOWN , FREQUENCY TIME : 1 TOTAL , DURATION : 1 DAY
     Dates: start: 20220916, end: 20220916
  7. CADUET [Concomitant]
     Active Substance: AMLODIPINE BESYLATE\ATORVASTATIN CALCIUM
     Indication: Product used for unknown indication
  8. REMIFENTANIL HYDROCHLORIDE [Concomitant]
     Active Substance: REMIFENTANIL HYDROCHLORIDE
     Indication: Anaesthesia
     Dosage: DOSE ADMINISTERED UNKNOWN  , CHLORHYDRATE DE REMIFENTANIL , FREQUENCY TIME : 1 TOTAL , DURATION : 1
     Dates: start: 20220916, end: 20220916

REACTIONS (2)
  - Anaphylactic shock [Recovering/Resolving]
  - Cerebrovascular accident [Recovering/Resolving]

NARRATIVE: CASE EVENT DATE: 20220916
